FAERS Safety Report 7700238-1 (Version None)
Quarter: 2011Q3

REPORT INFORMATION
  Report Type: 
  Country: None (occurrence: None)
  Receive Date: 20110816
  Receipt Date: 20110727
  Transmission Date: 20111222
  Serious: Yes (Hospitalization, Other)
  Sender: FDA-Public Use
  Company Number: JPI-P-016041

PATIENT
  Age: 32 Year
  Sex: Male

DRUGS (2)
  1. MODAFINIL [Concomitant]
  2. XYREM [Suspect]
     Indication: NARCOLEPSY
     Dosage: 9 GM (4.5 GM, 2 IN 1 D), ORAL
     Route: 048
     Dates: start: 20100401

REACTIONS (1)
  - SHOULDER OPERATION [None]
